FAERS Safety Report 4530827-7 (Version None)
Quarter: 2004Q4

REPORT INFORMATION
  Report Type: 
  Country: None (occurrence: None)
  Receive Date: 20041216
  Receipt Date: 20041203
  Transmission Date: 20050328
  Serious: No
  Sender: FDA-Public Use
  Company Number: 04H-034-0283194-00

PATIENT

DRUGS (1)
  1. LIDOCAINE HCL [Suspect]
     Indication: ANAESTHESIA
     Dosage: INJECTION

REACTIONS (3)
  - CARDIAC DISORDER [None]
  - PHARMACEUTICAL PRODUCT COMPLAINT [None]
  - VASOCONSTRICTION [None]
